FAERS Safety Report 6804846-1 (Version None)
Quarter: 2010Q2

REPORT INFORMATION
  Report Type: 
  Country: None (occurrence: None)
  Receive Date: 20100628
  Receipt Date: 20070612
  Transmission Date: 20101027
  Serious: No
  Sender: FDA-Public Use
  Company Number: US-PFIZER INC-2007048117

PATIENT
  Sex: Male
  Weight: 81.818 kg

DRUGS (2)
  1. GEODON [Suspect]
     Indication: PANIC ATTACK
     Dates: start: 20070531
  2. GEODON [Suspect]
     Indication: DELIRIUM

REACTIONS (5)
  - AGITATION [None]
  - COMMUNICATION DISORDER [None]
  - FEELING ABNORMAL [None]
  - MEMORY IMPAIRMENT [None]
  - PANIC REACTION [None]
